FAERS Safety Report 19987859 (Version 2)
Quarter: 2022Q1

REPORT INFORMATION
  Report Type: Report from Study
  Country: CO (occurrence: CO)
  Receive Date: 20211023
  Receipt Date: 20220201
  Transmission Date: 20220424
  Serious: Yes (Disabling, Other)
  Sender: FDA-Public Use
  Company Number: CO-ABBVIE-21K-036-4133288-00

PATIENT
  Sex: Female

DRUGS (2)
  1. HUMIRA [Suspect]
     Active Substance: ADALIMUMAB
     Indication: Colitis ulcerative
     Route: 058
     Dates: start: 2019
  2. HUMIRA [Suspect]
     Active Substance: ADALIMUMAB
     Indication: Colitis ulcerative
     Route: 058
     Dates: start: 20210917

REACTIONS (9)
  - Uterine disorder [Recovering/Resolving]
  - Amnesia [Unknown]
  - Cervix carcinoma [Recovered/Resolved]
  - Therapeutic procedure [Unknown]
  - Procedural pain [Unknown]
  - Illness [Unknown]
  - Hypertonic bladder [Unknown]
  - Post procedural complication [Unknown]
  - Urinary tract infection [Unknown]

NARRATIVE: CASE EVENT DATE: 20210101
